FAERS Safety Report 19220782 (Version 1)
Quarter: 2021Q2

REPORT INFORMATION
  Report Type: Spontaneous
  Country: PL (occurrence: PL)
  Receive Date: 20210505
  Receipt Date: 20210505
  Transmission Date: 20210717
  Serious: Yes (Other)
  Sender: FDA-Public Use
  Company Number: NVSC2021PL095698

PATIENT
  Age: 66 Year
  Sex: Female
  Weight: 61 kg

DRUGS (4)
  1. OXALIPLATIN. [Suspect]
     Active Substance: OXALIPLATIN
     Indication: GASTRIC CANCER
     Dosage: 141.10 UNK
     Route: 042
     Dates: start: 20200113, end: 20200203
  2. DOCETAXEL. [Suspect]
     Active Substance: DOCETAXEL
     Indication: GASTRIC CANCER
     Dosage: 83 MG
     Route: 042
     Dates: start: 20200113, end: 20200203
  3. FOLIC ACID. [Suspect]
     Active Substance: FOLIC ACID
     Indication: GASTRIC CANCER
     Dosage: 3320 UNK
     Route: 042
     Dates: start: 20200113, end: 20200203
  4. FLUOROURACIL. [Suspect]
     Active Substance: FLUOROURACIL
     Indication: GASTRIC CANCER
     Dosage: 4316 MG (INFUSION PUMP)
     Route: 042
     Dates: start: 20200113, end: 20200203

REACTIONS (1)
  - Neutropenia [Unknown]

NARRATIVE: CASE EVENT DATE: 20200217
